FAERS Safety Report 13656092 (Version 1)
Quarter: 2017Q2

REPORT INFORMATION
  Report Type: Report from Study
  Country: US (occurrence: US)
  Receive Date: 20170615
  Receipt Date: 20170615
  Transmission Date: 20170830
  Serious: Yes (Death, Hospitalization)
  Sender: FDA-Public Use
  Company Number: US-TORRENT-00002809

PATIENT
  Age: 24 Year
  Sex: Female

DRUGS (7)
  1. AMITRIPTYLINE [Suspect]
     Active Substance: AMITRIPTYLINE
  2. QUETIAPINE. [Suspect]
     Active Substance: QUETIAPINE
  3. TRAMADOL. [Suspect]
     Active Substance: TRAMADOL
  4. OXCARBAZEPINE. [Suspect]
     Active Substance: OXCARBAZEPINE
  5. METHADONE [Suspect]
     Active Substance: METHADONE HYDROCHLORIDE
  6. ACETAMINOPHEN/HYDROCODONE [Suspect]
     Active Substance: ACETAMINOPHEN\HYDROCODONE
  7. AMLODIPINE BESYLATE. [Suspect]
     Active Substance: AMLODIPINE BESYLATE

REACTIONS (2)
  - Toxicity to various agents [Fatal]
  - Completed suicide [Fatal]
